FAERS Safety Report 6639227-7 (Version None)
Quarter: 2010Q1

REPORT INFORMATION
  Report Type: 
  Country: None (occurrence: None)
  Receive Date: 20100315
  Receipt Date: 20100310
  Transmission Date: 20100710
  Serious: Yes (Other)
  Sender: FDA-Public Use
  Company Number: A0849410A

PATIENT
  Age: 74 Year
  Sex: Female

DRUGS (1)
  1. METHYLCELLULOSE SUSPENSION REGULAR (METHYLCELLULOSE) [Suspect]
     Indication: DRUG USE FOR UNKNOWN INDICATION

REACTIONS (1)
  - GLUCOSE TOLERANCE IMPAIRED [None]
